FAERS Safety Report 5596318-X (Version None)
Quarter: 2007Q4

REPORT INFORMATION
  Report Type: 
  Country: None (occurrence: None)
  Receive Date: 20071218
  Receipt Date: 20070503
  Transmission Date: 20080405
  Serious: Yes (Other)
  Sender: FDA-Public Use
  Company Number: 2006126830

PATIENT
  Sex: Female

DRUGS (2)
  1. BEXTRA [Suspect]
     Indication: INFLAMMATION
     Dosage: 20 MG (20 MG,1 IN 1 D),ORAL
     Route: 048
  2. BEXTRA [Suspect]
     Indication: PAIN
     Dosage: 20 MG (20 MG,1 IN 1 D),ORAL
     Route: 048

REACTIONS (5)
  - ANXIETY [None]
  - DEPRESSION [None]
  - DYSPNOEA [None]
  - MYOCARDIAL INFARCTION [None]
  - SLEEP DISORDER [None]
